FAERS Safety Report 7074359-3 (Version None)
Quarter: 2010Q4

REPORT INFORMATION
  Report Type: 
  Country: None (occurrence: None)
  Receive Date: 20101029
  Receipt Date: 20101020
  Transmission Date: 20110411
  Serious: Yes (Other)
  Sender: FDA-Public Use
  Company Number: FI-BRISTOL-MYERS SQUIBB COMPANY-15266562

PATIENT
  Age: 56 Year
  Sex: Female

DRUGS (10)
  1. ERBITUX [Suspect]
     Dosage: RECENT INF:10AUG2010(200MG/M2) NO OF INF:33
     Route: 042
     Dates: start: 20090225
  2. FLUOROURACIL [Suspect]
     Dosage: RECENT INF:10AUG2010 (500MG/M2)
     Route: 042
  3. LEUCOVORIN CALCIUM [Suspect]
     Dosage: RECENT INF:10AUG2010 (200MG/M2)
     Route: 042
  4. IRINOTECAN HCL [Concomitant]
     Dates: start: 20081117, end: 20090210
  5. EMGESAN [Concomitant]
     Dosage: ALSO TAKEN 250MG
  6. IBUPROFEN [Concomitant]
  7. SPIRESIS [Concomitant]
  8. CETRIZINE [Concomitant]
     Indication: PREMEDICATION
     Route: 048
     Dates: start: 20100810
  9. DEXAMETHASONE [Concomitant]
     Indication: PREMEDICATION
     Route: 048
     Dates: start: 20100810
  10. OPTANOX [Concomitant]

REACTIONS (1)
  - VISUAL ACUITY REDUCED [None]
